FAERS Safety Report 16972454 (Version 5)
Quarter: 2020Q1

REPORT INFORMATION
  Report Type: Report from Study
  Country: None (occurrence: FR)
  Receive Date: 20191029
  Receipt Date: 20200304
  Transmission Date: 20200409
  Serious: Yes (Other)
  Sender: FDA-Public Use
  Company Number: FR-ABBVIE-19K-056-2976437-00

PATIENT
  Age: 79 Year
  Sex: Male
  Weight: 85 kg

DRUGS (15)
  1. PARACETAMOL [Concomitant]
     Active Substance: ACETAMINOPHEN
     Indication: PAIN
     Dosage: AS NEEDED
     Dates: start: 20190615
  2. CONTRAMAL [Concomitant]
     Active Substance: TRAMADOL HYDROCHLORIDE
     Indication: PAIN
     Dosage: AS NEEDED
     Dates: start: 20190519
  3. LOVENOX [Concomitant]
     Active Substance: ENOXAPARIN SODIUM
     Indication: PROPHYLAXIS
     Dates: start: 20190721
  4. VENCLYXTO [Suspect]
     Active Substance: VENETOCLAX
     Route: 048
     Dates: start: 20190531, end: 20190612
  5. VENCLYXTO [Suspect]
     Active Substance: VENETOCLAX
     Route: 048
     Dates: start: 20190613, end: 20190619
  6. AUGMENTIN [Concomitant]
     Active Substance: AMOXICILLIN\CLAVULANATE POTASSIUM
     Indication: RICHTER^S SYNDROME
     Dates: start: 20190601, end: 20190801
  7. RITUXIMAB. [Concomitant]
     Active Substance: RITUXIMAB
     Indication: CHRONIC LYMPHOCYTIC LEUKAEMIA
     Dates: start: 20190620, end: 20190926
  8. IMOVANE [Concomitant]
     Active Substance: ZOPICLONE
     Indication: RICHTER^S SYNDROME
     Dates: start: 20190604
  9. VENCLYXTO [Suspect]
     Active Substance: VENETOCLAX
     Indication: CHRONIC LYMPHOCYTIC LEUKAEMIA
     Route: 048
     Dates: start: 20190519, end: 20190530
  10. IPILIMUMAB [Concomitant]
     Active Substance: IPILIMUMAB
     Indication: NEOPLASM MALIGNANT
     Dates: start: 20190729
  11. VENCLYXTO [Suspect]
     Active Substance: VENETOCLAX
     Route: 048
     Dates: start: 20190719
  12. FASTURTEC [Concomitant]
     Active Substance: RASBURICASE
     Indication: PROPHYLAXIS
     Dates: start: 20190519
  13. VENCLYXTO [Suspect]
     Active Substance: VENETOCLAX
     Route: 048
     Dates: start: 20190620, end: 20190718
  14. BACTRIM [Concomitant]
     Active Substance: SULFAMETHOXAZOLE\TRIMETHOPRIM
     Indication: INFECTION PROPHYLAXIS
     Dates: start: 20190519
  15. ZELITREX [Concomitant]
     Active Substance: VALACYCLOVIR HYDROCHLORIDE
     Indication: INFECTION PROPHYLAXIS
     Dates: start: 20190519

REACTIONS (5)
  - Off label use [Unknown]
  - Oral disorder [Recovered/Resolved]
  - Tumour lysis syndrome [Recovered/Resolved]
  - Hypercalcaemia of malignancy [Not Recovered/Not Resolved]
  - Pyrexia [Not Recovered/Not Resolved]

NARRATIVE: CASE EVENT DATE: 201905
